FAERS Safety Report 4702395-8 (Version None)
Quarter: 2005Q2

REPORT INFORMATION
  Report Type: 
  Country: None (occurrence: None)
  Receive Date: 20050113
  Receipt Date: 20050113
  Transmission Date: 20051028
  Serious: Yes (Other)
  Sender: FDA-Public Use
  Company Number: None

PATIENT
  Sex: Female

DRUGS (1)
  1. XANAX [Suspect]
     Indication: ANXIETY
     Dosage: 0.25 TID

REACTIONS (3)
  - ANXIETY [None]
  - CONDITION AGGRAVATED [None]
  - DRUG EFFECT DECREASED [None]
